FAERS Safety Report 19185144 (Version 1)
Quarter: 2021Q2

REPORT INFORMATION
  Report Type: Spontaneous
  Country: GB (occurrence: GB)
  Receive Date: 20210427
  Receipt Date: 20210427
  Transmission Date: 20210717
  Serious: Yes (Disabling, Other)
  Sender: FDA-Public Use
  Company Number: GB-MYLANLABS-2021M1024544

PATIENT
  Age: 35 Year
  Sex: Female

DRUGS (1)
  1. NAPROXEN. [Suspect]
     Active Substance: NAPROXEN
     Indication: ILL-DEFINED DISORDER
     Dosage: 2X500MG X28 DAYS
     Route: 048
     Dates: start: 20200622, end: 20200721

REACTIONS (8)
  - Gastrointestinal inflammation [Not Recovered/Not Resolved]
  - Nodule [Unknown]
  - Food intolerance [Not Recovered/Not Resolved]
  - Joint swelling [Unknown]
  - Affective disorder [Recovered/Resolved with Sequelae]
  - Medication error [Unknown]
  - Thrombosis [Unknown]
  - Skin discolouration [Unknown]

NARRATIVE: CASE EVENT DATE: 202007
